FAERS Safety Report 8411562-1 (Version None)
Quarter: 2012Q2

REPORT INFORMATION
  Report Type: 
  Country: None (occurrence: None)
  Receive Date: 20120605
  Receipt Date: 20120511
  Transmission Date: 20120825
  Serious: No
  Sender: FDA-Public Use
  Company Number: US-AMGEN-USASP2012029937

PATIENT
  Age: 51 Year
  Sex: Female

DRUGS (3)
  1. NAPROXEN [Concomitant]
     Dosage: 1 G, UNK
  2. ENBREL [Suspect]
     Indication: RHEUMATOID ARTHRITIS
     Dosage: 50 MG, QWK
     Dates: start: 20120222
  3. PREDNISONE [Concomitant]
     Dosage: UNK

REACTIONS (2)
  - PAIN [None]
  - PAIN IN EXTREMITY [None]
